FAERS Safety Report 5556085-2 (Version None)
Quarter: 2007Q4

REPORT INFORMATION
  Report Type: 
  Country: None (occurrence: None)
  Receive Date: 20071213
  Receipt Date: 20071205
  Transmission Date: 20080405
  Serious: Yes (Other)
  Sender: FDA-Public Use
  Company Number: PHBS2007BR20649

PATIENT
  Age: 61 Year
  Sex: Male

DRUGS (1)
  1. ZADITEN [Suspect]
     Indication: LACRIMATION INCREASED
     Dosage: 1 TO 2 DROPS IN EACH EYE QID
     Dates: start: 20070914, end: 20070918

REACTIONS (5)
  - EYELID OEDEMA [None]
  - PRURITUS [None]
  - SCAR [None]
  - SKIN DISCOLOURATION [None]
  - SKIN EXFOLIATION [None]
